FAERS Safety Report 8708290 (Version 2)
Quarter: 2013Q1

REPORT INFORMATION
  Report Type: Report from Study
  Country: CA (occurrence: CA)
  Receive Date: 20120806
  Receipt Date: 20130201
  Transmission Date: 20140127
  Serious: Yes (Hospitalization)
  Sender: FDA-Public Use
  Company Number: CA-JNJFOC-20120800533

PATIENT
  Age: 55 Year
  Sex: Female
  Weight: 75.4 kg

DRUGS (7)
  1. REMICADE [Suspect]
     Indication: RHEUMATOID ARTHRITIS
     Dosage: 43RD DOSE IN SERIES
     Route: 042
     Dates: start: 20120630
  2. REMICADE [Suspect]
     Indication: RHEUMATOID ARTHRITIS
     Route: 042
     Dates: start: 20060320, end: 20120419
  3. SALBUTAMOL [Concomitant]
     Route: 065
  4. CELEBREX [Concomitant]
     Route: 065
  5. NASONEX [Concomitant]
     Route: 065
  6. METHOTREXATE [Concomitant]
     Indication: RHEUMATOID ARTHRITIS
     Route: 048
  7. HYDROCHLOROTHIAZIDE [Concomitant]
     Indication: HYPERTENSION
     Route: 048

REACTIONS (1)
  - Cholecystitis [Recovered/Resolved]
